FAERS Safety Report 9214584 (Version 1)
Quarter: 2013Q2

REPORT INFORMATION
  Report Type: Spontaneous
  Country: FR (occurrence: FR)
  Receive Date: 20130405
  Receipt Date: 20130405
  Transmission Date: 20140414
  Serious: Yes (Life-Threatening, Hospitalization)
  Sender: FDA-Public Use
  Company Number: FR-ASTRAZENECA-2013SE21433

PATIENT
  Age: 23146 Day
  Sex: Male

DRUGS (8)
  1. XEROQUEL [Suspect]
     Indication: PSYCHOTIC DISORDER
     Route: 048
     Dates: end: 20130227
  2. CLOPIDOGREL [Concomitant]
     Indication: TRANSIENT ISCHAEMIC ATTACK
     Route: 048
  3. PRAVASTATINE [Concomitant]
     Route: 048
  4. ZOPICLONE [Concomitant]
     Indication: INSOMNIA
     Route: 048
  5. LYRICA [Concomitant]
     Indication: NEURALGIA
     Route: 048
  6. LERCANDIPINE [Concomitant]
     Indication: HYPERTENSION
     Route: 048
  7. OMEPRAZOLE [Concomitant]
     Route: 048
  8. BROMAZEPAM [Concomitant]
     Route: 048

REACTIONS (3)
  - Intentional overdose [Unknown]
  - Pulmonary embolism [Recovered/Resolved]
  - Deep vein thrombosis [Recovered/Resolved]
